FAERS Safety Report 8598388-3 (Version None)
Quarter: 2012Q3

REPORT INFORMATION
  Report Type: 
  Country: None (occurrence: None)
  Receive Date: 20120816
  Receipt Date: 20120807
  Transmission Date: 20120928
  Serious: Yes (Hospitalization)
  Sender: FDA-Public Use
  Company Number: FR-ASTRAZENECA-2012SE56007

PATIENT
  Age: 23576 Day
  Sex: Female

DRUGS (7)
  1. LEVOTHYROXINE SODIUM [Concomitant]
     Route: 048
  2. CELOCURINE [Suspect]
     Indication: INDUCTION OF ANAESTHESIA
     Dosage: ONCE/SINGLE ADMINISTRATION
     Route: 042
     Dates: start: 20120327, end: 20120327
  3. MIDAZOLAM HCL [Suspect]
     Dosage: ONCE/SINGLE ADMINISTRATION
     Route: 042
     Dates: start: 20120327, end: 20120327
  4. ATARAX [Concomitant]
     Dosage: ONCE/SINGLE ADMINISTRATION
     Route: 048
     Dates: start: 20120327, end: 20120327
  5. LEXOMIL [Concomitant]
     Route: 048
  6. SUFENTANIL CITRATE [Suspect]
     Indication: INDUCTION OF ANAESTHESIA
     Route: 042
     Dates: start: 20120327, end: 20120327
  7. DIPRIVAN [Suspect]
     Indication: INDUCTION OF ANAESTHESIA
     Dosage: ONCE/SINGLE ADMINISTRATION
     Route: 042
     Dates: start: 20120327, end: 20120327

REACTIONS (3)
  - ERYTHEMA [None]
  - TACHYCARDIA [None]
  - CIRCULATORY COLLAPSE [None]
